FAERS Safety Report 9547439 (Version 1)
Quarter: 2013Q3

REPORT INFORMATION
  Report Type: Report from Study
  Country: BR (occurrence: BR)
  Receive Date: 20130924
  Receipt Date: 20130924
  Transmission Date: 20140515
  Serious: Yes (Other)
  Sender: FDA-Public Use
  Company Number: PHHY2013BR105106

PATIENT
  Age: 57 Year
  Sex: Male

DRUGS (6)
  1. FORASEQ [Suspect]
     Indication: CHRONIC OBSTRUCTIVE PULMONARY DISEASE
     Dosage: UNK UKN, BID
  2. FORASEQ [Suspect]
     Indication: RESPIRATORY TRACT INFECTION
  3. PREDNISONE [Concomitant]
     Indication: CHRONIC OBSTRUCTIVE PULMONARY DISEASE
     Dosage: 40 MG, QD, FOR 7 DAYS
  4. PREDNISONE [Concomitant]
     Indication: RESPIRATORY TRACT INFECTION
  5. LEVOFLOXACIN [Concomitant]
     Indication: CHRONIC OBSTRUCTIVE PULMONARY DISEASE
     Dosage: 750 MG, QD, 10 DAYS
  6. LEVOFLOXACIN [Concomitant]
     Indication: RESPIRATORY TRACT INFECTION

REACTIONS (8)
  - Lung hyperinflation [Recovering/Resolving]
  - Emphysema [Recovering/Resolving]
  - Pulmonary fibrosis [Recovering/Resolving]
  - Electrocardiogram QT shortened [Recovering/Resolving]
  - PO2 decreased [Recovering/Resolving]
  - Upper respiratory tract infection [Recovering/Resolving]
  - Sputum purulent [Recovering/Resolving]
  - Dysphonia [Recovering/Resolving]
